FAERS Safety Report 4499303-4 (Version None)
Quarter: 2004Q3

REPORT INFORMATION
  Report Type: 
  Country: None (occurrence: None)
  Receive Date: 20040928
  Receipt Date: 20040728
  Transmission Date: 20050211
  Serious: No
  Sender: FDA-Public Use
  Company Number: 04P-163-0268312-00

PATIENT
  Age: 82 Year
  Sex: Female
  Weight: 64.4108 kg

DRUGS (7)
  1. HUMIRA [Suspect]
     Indication: RHEUMATOID ARTHRITIS
     Dosage: 40 MG, 1 IN 2 WK, SUBCUTANEOUS
     Route: 058
     Dates: start: 20040511
  2. ISOSORBIDE [Concomitant]
  3. CARVEDILOL [Concomitant]
  4. ALENDRONATE SODIUM [Concomitant]
  5. BUCINDOLOL HYDROCHLORIDE [Concomitant]
  6. METHOTREXATE [Concomitant]
  7. INSULIN [Concomitant]

REACTIONS (1)
  - CHEST DISCOMFORT [None]
